FAERS Safety Report 8352466-2 (Version None)
Quarter: 2012Q2

REPORT INFORMATION
  Report Type: 
  Country: None (occurrence: None)
  Receive Date: 20120511
  Receipt Date: 20120427
  Transmission Date: 20120825
  Serious: Yes (Other)
  Sender: FDA-Public Use
  Company Number: DE-MYLANLABS-2012S1008655

PATIENT
  Age: 60 Year
  Sex: Female

DRUGS (3)
  1. DICLOFENAC W/MISOPROSTOL [Concomitant]
     Indication: RHEUMATOID ARTHRITIS
     Dosage: 75MG/0.2MG/DAY
     Route: 065
     Dates: start: 19980101
  2. PREDNISOLONE [Concomitant]
     Indication: RHEUMATOID ARTHRITIS
     Dosage: 2.5 MG/DAY
     Route: 065
     Dates: start: 19980101
  3. METHOTREXATE [Suspect]
     Indication: RHEUMATOID ARTHRITIS
     Dosage: 15 MG/WEEK
     Route: 065
     Dates: start: 19980101

REACTIONS (3)
  - PHARYNGITIS [None]
  - MOUTH ULCERATION [None]
  - ODYNOPHAGIA [None]
